FAERS Safety Report 8419615-9 (Version None)
Quarter: 2012Q2

REPORT INFORMATION
  Report Type: 
  Country: None (occurrence: None)
  Receive Date: 20120607
  Receipt Date: 20120529
  Transmission Date: 20120825
  Serious: Yes (Hospitalization, Disabling, Other)
  Sender: FDA-Public Use
  Company Number: US-MERCK-1202USA02462

PATIENT
  Age: 76 Year
  Sex: Female
  Weight: 88 kg

DRUGS (7)
  1. FOSAMAX [Suspect]
     Indication: OSTEOPOROSIS
     Route: 048
     Dates: start: 20010901
  2. FOSAMAX [Suspect]
     Route: 048
     Dates: start: 20050601, end: 20080101
  3. FOSAMAX [Suspect]
     Route: 048
     Dates: start: 20080301
  4. FOSAMAX [Suspect]
     Indication: OSTEOPENIA
     Route: 048
     Dates: start: 20010901
  5. CORTICOSTEROIDS (UNSPECIFIED) [Concomitant]
     Indication: LICHEN SCLEROSUS
     Route: 065
  6. FOSAMAX [Suspect]
     Route: 048
     Dates: start: 20050601, end: 20080101
  7. ALENDRONATE SODIUM [Suspect]
     Indication: OSTEOPOROSIS
     Route: 048
     Dates: start: 20090601

REACTIONS (46)
  - FEMUR FRACTURE [None]
  - CARDIAC FAILURE ACUTE [None]
  - CHEST PAIN [None]
  - ATRIAL FIBRILLATION [None]
  - HAEMOGLOBIN DECREASED [None]
  - GROIN PAIN [None]
  - CONTUSION [None]
  - THYROID ADENOMA [None]
  - POLLAKIURIA [None]
  - CARDIAC MURMUR [None]
  - HERPES ZOSTER [None]
  - PNEUMONIA [None]
  - AUTOIMMUNE THYROIDITIS [None]
  - ARTHRITIS [None]
  - CEREBROVASCULAR ACCIDENT [None]
  - GALLBLADDER DISORDER [None]
  - LOW TURNOVER OSTEOPATHY [None]
  - ANGIOEDEMA [None]
  - BLADDER PROLAPSE [None]
  - FACE OEDEMA [None]
  - WHITE BLOOD CELLS URINE [None]
  - CATARACT [None]
  - ANAEMIA POSTOPERATIVE [None]
  - FEMORAL NECK FRACTURE [None]
  - CYSTITIS [None]
  - HAEMATOCRIT DECREASED [None]
  - PAIN IN EXTREMITY [None]
  - BLOOD URINE PRESENT [None]
  - ARRHYTHMIA [None]
  - HYPERTENSION [None]
  - ARTHROPATHY [None]
  - URINARY TRACT INFECTION [None]
  - BLOOD SODIUM DECREASED [None]
  - HYPERTONIC BLADDER [None]
  - CELLULITIS [None]
  - LACUNAR INFARCTION [None]
  - FRACTURED SACRUM [None]
  - TRANSIENT ISCHAEMIC ATTACK [None]
  - BACK PAIN [None]
  - APPENDIX DISORDER [None]
  - OSTEOARTHRITIS [None]
  - HAEMATOMA [None]
  - DRUG ADMINISTRATION ERROR [None]
  - URINARY INCONTINENCE [None]
  - PULMONARY ARTERIAL PRESSURE INCREASED [None]
  - ABDOMINAL PAIN LOWER [None]
